FAERS Safety Report 6316898-6 (Version None)
Quarter: 2009Q3

REPORT INFORMATION
  Report Type: 
  Country: None (occurrence: None)
  Receive Date: 20090820
  Receipt Date: 20090814
  Transmission Date: 20100115
  Serious: Yes (Hospitalization)
  Sender: FDA-Public Use
  Company Number: CO-ELI_LILLY_AND_COMPANY-CO200908003423

PATIENT
  Age: 55 Year
  Sex: Female

DRUGS (6)
  1. BYETTA [Suspect]
     Indication: TYPE 2 DIABETES MELLITUS
     Dosage: 10 UG, 2/D
     Route: 058
     Dates: start: 20081105
  2. METFORMIN [Concomitant]
     Dosage: UNK, UNKNOWN
     Route: 065
  3. GLIMEPIRIDE [Concomitant]
     Dosage: UNK, UNKNOWN
     Route: 065
  4. VALSARTAN [Concomitant]
     Dosage: UNK, UNKNOWN
     Route: 065
  5. HYDROCHLORTHIAZID [Concomitant]
     Dosage: UNK, UNKNOWN
     Route: 065
  6. OMEPRAZOL [Concomitant]
     Dosage: UNK, UNKNOWN
     Route: 065

REACTIONS (4)
  - DYSPNOEA [None]
  - INFLUENZA [None]
  - PULMONARY HYPERTENSION [None]
  - PYREXIA [None]
